FAERS Safety Report 9850110 (Version 1)
Quarter: 2013Q4

REPORT INFORMATION
  Report Type: Spontaneous
  Country: US (occurrence: None)
  Receive Date: 20131226
  Receipt Date: 20131226
  Transmission Date: 20140711
  Serious: Yes (Hospitalization)
  Sender: FDA-Public Use
  Company Number: PHEH2012US016569

PATIENT
  Sex: 0

DRUGS (4)
  1. AFINITOR (RAD) UNKNOWN [Suspect]
  2. EXEMESTANE (EXEMESTANE) [Concomitant]
  3. DEPAKOTE (VALPROATE SEMISODIUM) [Concomitant]
  4. SEROQUEL (QUETIAPINE FUMARATE) [Concomitant]

REACTIONS (1)
  - Renal failure [None]
